FAERS Safety Report 7703231-8 (Version None)
Quarter: 2011Q3

REPORT INFORMATION
  Report Type: 
  Country: None (occurrence: None)
  Receive Date: 20110823
  Receipt Date: 20110822
  Transmission Date: 20111222
  Serious: Yes (Hospitalization, Other)
  Sender: FDA-Public Use
  Company Number: US-ROXANE LABORATORIES, INC.-2011-RO-01171RO

PATIENT
  Age: 46 Year
  Sex: Male

DRUGS (8)
  1. ASPIRIN [Suspect]
  2. METHADONE HYDROCHLORIDE [Suspect]
     Indication: BACK PAIN
     Route: 048
  3. TOPIRAMATE [Suspect]
  4. LISINOPRIL [Suspect]
  5. SIMAVASTATIN [Suspect]
  6. LEVETIRACETAM [Suspect]
  7. NALOXONE [Suspect]
     Route: 042
  8. CLOPIDOGREL [Suspect]

REACTIONS (6)
  - RESPIRATORY ACIDOSIS [None]
  - HEADACHE [None]
  - TOXICITY TO VARIOUS AGENTS [None]
  - DRUG INTERACTION [None]
  - MENTAL STATUS CHANGES [None]
  - RESPIRATORY DISTRESS [None]
